FAERS Safety Report 8832987 (Version 2)
Quarter: 2012Q4

REPORT INFORMATION
  Report Type: 
  Country: DK (occurrence: DK)
  Receive Date: 20121010
  Receipt Date: 20121023
  Transmission Date: 20130627
  Serious: Yes (Hospitalization)
  Sender: FDA-Public Use
  Company Number: PHHY2012DK086082

PATIENT
  Age: 42 Year
  Sex: Female
  Weight: 93 kg

DRUGS (3)
  1. METOPROLOL SUCCINATE [Suspect]
     Indication: HYPERTENSION
     Dosage: 100 mg, QD
     Dates: start: 20120909, end: 20120923
  2. MAREVAN [Interacting]
  3. CENTYL MED KALIUMKLORID [Concomitant]

REACTIONS (5)
  - International normalised ratio increased [Recovered/Resolved]
  - Gingival bleeding [Recovered/Resolved]
  - Vaginal haemorrhage [Recovered/Resolved]
  - Eye haemorrhage [Recovered/Resolved]
  - Drug interaction [Unknown]
